FAERS Safety Report 7406404-7 (Version None)
Quarter: 2011Q2

REPORT INFORMATION
  Report Type: 
  Country: None (occurrence: None)
  Receive Date: 20110411
  Receipt Date: 20110401
  Transmission Date: 20111010
  Serious: Yes (Other)
  Sender: FDA-Public Use
  Company Number: US-ASTRAZENECA-2011SE18638

PATIENT
  Age: 14 Year
  Sex: Female

DRUGS (13)
  1. LEXAPRO [Suspect]
     Route: 048
     Dates: start: 20101101, end: 20110312
  2. LEXAPRO [Suspect]
     Route: 048
     Dates: start: 20110313
  3. LEXAPRO [Suspect]
     Route: 048
     Dates: start: 20101101, end: 20110312
  4. SEROQUEL [Suspect]
     Indication: SOCIAL PHOBIA
     Dosage: 25 MG QAM AND 50 MG QPM
     Route: 048
     Dates: start: 20110201, end: 20110101
  5. SEROQUEL [Suspect]
     Dosage: 50 MG QAM AND 100 MG QPM
     Route: 048
     Dates: start: 20110101, end: 20110309
  6. LEXAPRO [Suspect]
     Route: 048
     Dates: start: 20110313
  7. LEXAPRO [Suspect]
     Indication: DEPRESSION
     Route: 048
     Dates: start: 20080101
  8. SEROQUEL [Suspect]
     Indication: DEPRESSION
     Dosage: 25 MG QAM AND 50 MG QPM
     Route: 048
     Dates: start: 20110201, end: 20110101
  9. SEROQUEL [Suspect]
     Dosage: 50 MG QAM AND 100 MG QPM
     Route: 048
     Dates: start: 20110101, end: 20110309
  10. LEXAPRO [Suspect]
     Indication: SOCIAL PHOBIA
     Route: 048
     Dates: start: 20080101
  11. LEXAPRO [Suspect]
     Route: 048
  12. LEXAPRO [Suspect]
     Route: 048
  13. CLONIDINE [Concomitant]
     Indication: INSOMNIA
     Route: 048

REACTIONS (3)
  - INSOMNIA [None]
  - DYSTONIA [None]
  - BIPOLAR DISORDER [None]
